FAERS Safety Report 8395371-8 (Version None)
Quarter: 2012Q1

REPORT INFORMATION
  Report Type: 
  Country: None (occurrence: None)
  Receive Date: 20120323
  Receipt Date: 20110609
  Transmission Date: 20120608
  Serious: Yes (Hospitalization, Other)
  Sender: FDA-Public Use
  Company Number: 163-21880-11033490

PATIENT
  Age: 84 Year
  Sex: Male
  Weight: 84.18 kg

DRUGS (23)
  1. REVLIMID [Suspect]
     Indication: MULTIPLE MYELOMA
     Dosage: 15 MG, EVERY OTHER DAY FOR 21 DAYS, 7 DAYS OFF, PO
     Route: 048
     Dates: start: 20100117
  2. NEURONTIN [Concomitant]
  3. DYAZIDE [Concomitant]
  4. XOPENEX HFA (LEVOSALBUTAMOL TARTRATE) [Concomitant]
  5. PROVENTIL [Concomitant]
  6. PROSCAR [Concomitant]
  7. CELEBREX [Concomitant]
  8. POTASSIUM CHLORIDE [Concomitant]
  9. LOVENOX [Concomitant]
  10. ZOMETA [Concomitant]
  11. POTASSIUM CHLORIDE [Concomitant]
  12. SKELAXIN [Concomitant]
  13. TERAZOSIN HCL [Concomitant]
  14. ZYLOPRIM [Concomitant]
  15. MECLIZINE HCL (MECLOZINE HYDROCHLORIDE) [Concomitant]
  16. DEXAMETHASONE [Concomitant]
  17. LOPERIMIDE (LOPERAMIDE) [Concomitant]
  18. NEXIUM [Concomitant]
  19. ALLOPURINOL [Concomitant]
  20. MILK OF MAGNESIA TAB [Concomitant]
  21. PREDNISONE TAB [Concomitant]
  22. LORTAB [Concomitant]
  23. AREDIA [Concomitant]

REACTIONS (10)
  - CONFUSIONAL STATE [None]
  - FALL [None]
  - HYPOXIA [None]
  - DIARRHOEA [None]
  - HYPOKALAEMIA [None]
  - PANCYTOPENIA [None]
  - PNEUMONIA KLEBSIELLA [None]
  - URINARY TRACT INFECTION [None]
  - BRONCHITIS [None]
  - DISORIENTATION [None]
